FAERS Safety Report 9491997 (Version 1)
Quarter: 2013Q3

REPORT INFORMATION
  Report Type: Spontaneous
  Country: CN (occurrence: None)
  Receive Date: 20130827
  Receipt Date: 20130827
  Transmission Date: 20140515
  Serious: Yes (Other)
  Sender: FDA-Public Use
  Company Number: 2013P1018676

PATIENT
  Sex: Female

DRUGS (1)
  1. ALBENDAZOLE [Suspect]
     Indication: PROPHYLAXIS
     Route: 048
     Dates: start: 20130813, end: 20130813

REACTIONS (1)
  - Retinal haemorrhage [None]
